FAERS Safety Report 21258031 (Version 1)
Quarter: 2022Q3

REPORT INFORMATION
  Report Type: Other
  Country: BR (occurrence: None)
  Receive Date: 20220826
  Receipt Date: 20220826
  Transmission Date: 20221027
  Serious: Yes (Other)
  Sender: FDA-Public Use
  Company Number: BR-ROCHE-3163445

PATIENT
  Sex: Female
  Weight: 84 kg

DRUGS (3)
  1. ACTEMRA [Suspect]
     Active Substance: TOCILIZUMAB
     Indication: Rheumatoid arthritis
     Route: 042
     Dates: start: 20180626
  2. FLUOXETINE [Concomitant]
     Active Substance: FLUOXETINE HYDROCHLORIDE
     Indication: Depression
  3. RIVOTRIL [Concomitant]
     Active Substance: CLONAZEPAM
     Dosage: INDICATION: SLEEPING

REACTIONS (17)
  - Thyroid disorder [Unknown]
  - Osteoarthritis [Unknown]
  - Hypertension [Unknown]
  - Drug hypersensitivity [Unknown]
  - Renal disorder [Recovering/Resolving]
  - Urine odour abnormal [Recovering/Resolving]
  - Cystitis [Recovering/Resolving]
  - Feeling abnormal [Recovering/Resolving]
  - Deafness [Recovering/Resolving]
  - Toxicity to various agents [Recovering/Resolving]
  - Vein disorder [Recovering/Resolving]
  - Ill-defined disorder [Recovering/Resolving]
  - Phlebitis [Recovering/Resolving]
  - Tooth extraction [Recovering/Resolving]
  - Weight decreased [Recovering/Resolving]
  - Arthritis [Recovering/Resolving]
  - Blood cholesterol increased [Recovering/Resolving]
